FAERS Safety Report 5291761-0 (Version None)
Quarter: 2007Q2

REPORT INFORMATION
  Report Type: 
  Country: None (occurrence: None)
  Receive Date: 20070410
  Receipt Date: 20070405
  Transmission Date: 20071010
  Serious: Yes (Death)
  Sender: FDA-Public Use
  Company Number: JP-AVENTIS-200710090JP

PATIENT
  Age: 70 Year
  Sex: Male
  Weight: 58.7 kg

DRUGS (7)
  1. TAXOTERE [Suspect]
     Dosage: DOSE: 40 MG/BODY
     Route: 041
     Dates: start: 20061114, end: 20061205
  2. TS-1 [Suspect]
     Route: 048
     Dates: start: 20061002, end: 20061029
  3. OMEPRAL [Concomitant]
     Indication: GASTRIC ULCER
     Route: 041
     Dates: start: 20060925, end: 20060927
  4. TAKEPRON [Concomitant]
     Indication: GASTRIC ULCER
     Route: 048
     Dates: start: 20060928
  5. NASEA [Concomitant]
     Indication: PREMEDICATION
     Route: 041
     Dates: start: 20061114, end: 20061205
  6. PREDONINE                          /00016201/ [Concomitant]
     Indication: PREMEDICATION
     Route: 041
     Dates: start: 20061114, end: 20061205
  7. TRANSFUSION [Concomitant]
     Dates: start: 20061002, end: 20061002

REACTIONS (1)
  - INTERSTITIAL LUNG DISEASE [None]
